FAERS Safety Report 25345926 (Version 2)
Quarter: 2025Q3

REPORT INFORMATION
  Report Type: Spontaneous
  Country: EU (occurrence: EU)
  Receive Date: 20250522
  Receipt Date: 20250712
  Transmission Date: 20251020
  Serious: Yes (Hospitalization)
  Sender: TAKEDA
  Company Number: EU-TAKEDA-2025TUS036838

PATIENT
  Age: 67 Year
  Sex: Male
  Weight: 80 kg

DRUGS (7)
  1. FRUZAQLA [Suspect]
     Active Substance: FRUQUINTINIB
     Indication: Adenocarcinoma of colon
  2. ATACAND [Concomitant]
     Active Substance: CANDESARTAN CILEXETIL
  3. KARDEGIC [Concomitant]
     Active Substance: ASPIRIN DL-LYSINE
  4. DAPAGLIFLOZIN [Concomitant]
     Active Substance: DAPAGLIFLOZIN
  5. Diamicron [Concomitant]
  6. TAHOR [Concomitant]
     Active Substance: ATORVASTATIN CALCIUM
  7. EZETIMIBE [Concomitant]
     Active Substance: EZETIMIBE

REACTIONS (4)
  - Malnutrition [Recovered/Resolved]
  - Sarcopenia [Recovering/Resolving]
  - Weight decreased [Recovered/Resolved]
  - Decreased appetite [Recovering/Resolving]

NARRATIVE: CASE EVENT DATE: 20250407
